FAERS Safety Report 24655699 (Version 2)
Quarter: 2025Q3

REPORT INFORMATION
  Report Type: Spontaneous
  Country: GB (occurrence: GB)
  Receive Date: 20241123
  Receipt Date: 20250810
  Transmission Date: 20251021
  Serious: Yes (Hospitalization, Other)
  Sender: ALEXION PHARMACEUTICALS
  Company Number: None

PATIENT
  Sex: Female
  Weight: 65 kg

DRUGS (2)
  1. DAPAGLIFLOZIN [Suspect]
     Active Substance: DAPAGLIFLOZIN
     Indication: Diabetes mellitus
  2. PREDNISOLONE [Concomitant]
     Active Substance: PREDNISOLONE
     Indication: Diabetes mellitus

REACTIONS (1)
  - Systemic candida [Recovering/Resolving]

NARRATIVE: CASE EVENT DATE: 20240917
